FAERS Safety Report 8286346 (Version 6)
Quarter: 2013Q1

REPORT INFORMATION
  Report Type: Spontaneous
  Country: US (occurrence: US)
  Receive Date: 20111213
  Receipt Date: 20130329
  Transmission Date: 20140127
  Serious: Yes (Hospitalization)
  Sender: FDA-Public Use
  Company Number: US-GLAXOSMITHKLINE-B0768623A

PATIENT
  Age: 75 Year
  Sex: Male

DRUGS (1)
  1. AVANDAMET [Suspect]
     Indication: DIABETES MELLITUS
     Route: 048
     Dates: start: 200610, end: 201012

REACTIONS (4)
  - Cerebrovascular accident [Not Recovered/Not Resolved]
  - Headache [Unknown]
  - Deep vein thrombosis [Unknown]
  - Dizziness [Unknown]
